FAERS Safety Report 19225526 (Version 1)
Quarter: 2021Q2

REPORT INFORMATION
  Report Type: Spontaneous
  Country: BE (occurrence: BE)
  Receive Date: 20210506
  Receipt Date: 20210506
  Transmission Date: 20210717
  Serious: Yes (Other)
  Sender: FDA-Public Use
  Company Number: BE-BAYER-2021-132207

PATIENT
  Sex: Female

DRUGS (1)
  1. AVELOX [Suspect]
     Active Substance: MOXIFLOXACIN HYDROCHLORIDE
     Dosage: UNK

REACTIONS (3)
  - Diarrhoea haemorrhagic [None]
  - Drug hypersensitivity [None]
  - Haemorrhage [None]

NARRATIVE: CASE EVENT DATE: 2014
